FAERS Safety Report 22132874 (Version 2)
Quarter: 2023Q2

REPORT INFORMATION
  Report Type: Spontaneous
  Country: BR (occurrence: BR)
  Receive Date: 20230323
  Receipt Date: 20230403
  Transmission Date: 20230721
  Serious: Yes (Other)
  Sender: FDA-Public Use
  Company Number: BR-009507513-2303BRA007885

PATIENT
  Age: 30 Year
  Sex: Female

DRUGS (10)
  1. KEYTRUDA [Suspect]
     Active Substance: PEMBROLIZUMAB
     Dosage: 4 CYCLES OF PEMBROLIZUMAB (KEYTRUDA) 200 MG EVERY 3 WEEKS + AC
     Dates: start: 202210, end: 202211
  2. KEYTRUDA [Suspect]
     Active Substance: PEMBROLIZUMAB
     Dosage: 4 CYLES OF PEMBROLIZUMAB (KEYTRUDA) 200 MG EVERY 3 WEEKS + CARBO + PACLITAXEL
     Dates: start: 202212, end: 202302
  3. ADRIAMYCIN [Suspect]
     Active Substance: DOXORUBICIN HYDROCHLORIDE
     Dosage: C1D1 OCT/22 TO NOV/22 ACDD X 4 CYCLES
     Dates: start: 202210, end: 202211
  4. CYCLOPHOSPHAMIDE [Suspect]
     Active Substance: CYCLOPHOSPHAMIDE
     Dosage: C1D1 OCT/22 TO NOV/22 ACDD X 4 CYCLES
     Dates: start: 202210, end: 202211
  5. CARBOPLATIN [Suspect]
     Active Substance: CARBOPLATIN
     Dosage: C1D1 DEC/22 TO FEB/23 ? CARBO + TAXOL + IO + ZOLADEX FERTILITY PREVENTION
     Dates: start: 202212, end: 202302
  6. TAXOL [Suspect]
     Active Substance: PACLITAXEL
     Dosage: C1D1 DEC/22 TO FEB/23 ? CARBO + TAXOL + IO + ZOLADEX FERTILITY PREVENTION
     Dates: start: 202212, end: 20221229
  7. TAXOL [Suspect]
     Active Substance: PACLITAXEL
     Dosage: C1D1 DEC/22 TO FEB/23 ? CARBO + TAXOL + IO + ZOLADEX FERTILITY PREVENTION
     Dates: start: 20221229, end: 202302
  8. ZOLADEX [Suspect]
     Active Substance: GOSERELIN ACETATE
     Indication: Prophylaxis
     Dosage: C1D1 DEC/22 TO FEB/23 ? CARBO + TAXOL + IO + ZOLADEX FERTILITY PREVENTION
     Dates: start: 202212, end: 202302
  9. VENLAFAXINE [Concomitant]
     Active Substance: VENLAFAXINE HYDROCHLORIDE
     Indication: Menopausal symptoms
     Dosage: 75 MG/DAY
     Dates: end: 202301
  10. VENLAFAXINE [Concomitant]
     Active Substance: VENLAFAXINE HYDROCHLORIDE
     Dosage: IN JANUARY 2023, THE VENLAFAXINE DOSE WAS INCREASED TO 150 MG/DAY
     Dates: start: 202301

REACTIONS (5)
  - Neuropathy peripheral [Unknown]
  - Cough [Unknown]
  - Dysphonia [Unknown]
  - Ocular hyperaemia [Unknown]
  - Throat irritation [Unknown]

NARRATIVE: CASE EVENT DATE: 20221229
